FAERS Safety Report 8113687-7 (Version None)
Quarter: 2012Q1

REPORT INFORMATION
  Report Type: 
  Country: None (occurrence: None)
  Receive Date: 20120203
  Receipt Date: 20120124
  Transmission Date: 20120608
  Serious: Yes (Hospitalization)
  Sender: FDA-Public Use
  Company Number: US-AMGEN-USASP2011067602

PATIENT
  Age: 59 Year
  Sex: Female

DRUGS (3)
  1. ENBREL [Suspect]
     Indication: RHEUMATOID ARTHRITIS
     Dosage: 50 MG, QWK
     Dates: start: 20041001
  2. TREXALL [Concomitant]
  3. FOLIC ACID [Concomitant]

REACTIONS (10)
  - INJECTION SITE PAIN [None]
  - ORAL PAIN [None]
  - INJECTION SITE ECZEMA [None]
  - STRESS [None]
  - JOINT SWELLING [None]
  - INJECTION SITE ERYTHEMA [None]
  - CONTUSION [None]
  - INJECTION SITE LACERATION [None]
  - BIPOLAR II DISORDER [None]
  - INJECTION SITE RASH [None]
